FAERS Safety Report 5392363-8 (Version None)
Quarter: 2007Q3

REPORT INFORMATION
  Report Type: 
  Country: None (occurrence: None)
  Receive Date: 20070720
  Receipt Date: 20070716
  Transmission Date: 20080115
  Serious: No
  Sender: FDA-Public Use
  Company Number: A0654400A

PATIENT
  Age: 41 Year
  Sex: Female

DRUGS (5)
  1. LAMICTAL [Suspect]
     Indication: BIPOLAR DISORDER
     Dosage: 50MG PER DAY
     Route: 048
     Dates: start: 20070524, end: 20070606
  2. ALLEGRA [Concomitant]
  3. BIAXIN [Concomitant]
  4. TOPAMAX [Concomitant]
  5. ALBUTEROL [Concomitant]

REACTIONS (5)
  - FATIGUE [None]
  - LYMPHADENOPATHY [None]
  - ORAL PAIN [None]
  - PHARYNGOLARYNGEAL PAIN [None]
  - RASH [None]
